FAERS Safety Report 5373611-7 (Version None)
Quarter: 2007Q2

REPORT INFORMATION
  Report Type: 
  Country: None (occurrence: None)
  Receive Date: 20070628
  Receipt Date: 20070618
  Transmission Date: 20071010
  Serious: Yes (Hospitalization)
  Sender: FDA-Public Use
  Company Number: HU-AMGEN-UK227643

PATIENT
  Sex: Male

DRUGS (13)
  1. PANITUMUMAB [Suspect]
     Indication: COLORECTAL CANCER
     Route: 042
     Dates: start: 20070312
  2. FLUOROURACIL [Concomitant]
  3. OXALIPLATIN [Concomitant]
  4. LEUCOVORIN CALCIUM [Concomitant]
  5. NEOMYCIN [Concomitant]
     Route: 061
     Dates: start: 20070608
  6. ONDANSETRON [Concomitant]
     Route: 048
     Dates: start: 20070326
  7. METRONIDAZOLE [Concomitant]
     Route: 061
     Dates: start: 20070326
  8. KYTRIL [Concomitant]
     Route: 048
     Dates: start: 20070410, end: 20070414
  9. METOCLOPRAMIDE [Concomitant]
     Route: 048
     Dates: start: 20070410, end: 20070528
  10. ZOFRAN [Concomitant]
     Route: 048
     Dates: start: 20070525, end: 20070528
  11. CLARITHROMYCIN [Concomitant]
     Route: 048
     Dates: start: 20070604, end: 20070607
  12. AMOXICILLIN AND CLAVULANATE POTASSIUM [Concomitant]
     Route: 048
     Dates: start: 20070608
  13. HYDROPHIL NON IONICUM [Concomitant]
     Route: 061
     Dates: start: 20070608

REACTIONS (2)
  - ACNE [None]
  - IMPETIGO [None]
